FAERS Safety Report 22132994 (Version 1)
Quarter: 2023Q1

REPORT INFORMATION
  Report Type: Spontaneous
  Country: US (occurrence: US)
  Receive Date: 20230324
  Receipt Date: 20230324
  Transmission Date: 20230418
  Serious: Yes (Hospitalization)
  Sender: FDA-Public Use
  Company Number: US-ALKEM LABORATORIES LIMITED-US-ALKEM-2023-00731

PATIENT
  Age: 72 Year
  Sex: Female

DRUGS (5)
  1. RANOLAZINE [Suspect]
     Active Substance: RANOLAZINE
     Indication: Acute myocardial infarction
     Dosage: 500 MILLIGRAM, BID
     Route: 065
  2. ATORVASTATIN [Concomitant]
     Active Substance: ATORVASTATIN
     Indication: Product used for unknown indication
     Dosage: 20 MILLIGRAM, QD
     Route: 065
  3. CLOPIDOGREL [Concomitant]
     Active Substance: CLOPIDOGREL BISULFATE
     Indication: Product used for unknown indication
     Dosage: 75 MILLIGRAM, QD
     Route: 065
  4. ASPIRIN [Concomitant]
     Active Substance: ASPIRIN
     Indication: Product used for unknown indication
     Dosage: 162 MILLIGRAM, QD
     Route: 065
  5. Diltiazam [Concomitant]
     Indication: Product used for unknown indication
     Dosage: 60 MILLIGRAM, QID
     Route: 065

REACTIONS (1)
  - Myoclonus [Recovered/Resolved]
